FAERS Safety Report 18639395 (Version 11)
Quarter: 2025Q2

REPORT INFORMATION
  Report Type: Report from Study
  Country: US (occurrence: US)
  Receive Date: 20201219
  Receipt Date: 20250509
  Transmission Date: 20250716
  Serious: Yes (Hospitalization, Other)
  Sender: TAKEDA
  Company Number: US-TAKEDA-US201827719

PATIENT
  Age: 62 Year
  Sex: Female
  Weight: 54 kg

DRUGS (29)
  1. HUMAN IMMUNOGLOBULIN G [Suspect]
     Active Substance: HUMAN IMMUNOGLOBULIN G
     Indication: Primary immunodeficiency syndrome
     Dosage: 6 GRAM, 1/WEEK
  2. HUMAN IMMUNOGLOBULIN G [Suspect]
     Active Substance: HUMAN IMMUNOGLOBULIN G
     Indication: Immunodeficiency common variable
     Dosage: 8 GRAM, 1/WEEK
     Dates: start: 20180301
  3. HUMAN IMMUNOGLOBULIN G [Suspect]
     Active Substance: HUMAN IMMUNOGLOBULIN G
     Dosage: 8 GRAM, 1/WEEK
  4. ACETAMINOPHEN [Concomitant]
     Active Substance: ACETAMINOPHEN
  5. METOPROLOL TARTRATE [Concomitant]
     Active Substance: METOPROLOL TARTRATE
  6. LIPITOR [Concomitant]
     Active Substance: ATORVASTATIN CALCIUM
  7. TYLENOL [Concomitant]
     Active Substance: ACETAMINOPHEN
  8. TRAZODONE HCL [Concomitant]
     Active Substance: TRAZODONE HYDROCHLORIDE
  9. BREO ELLIPTA [Concomitant]
     Active Substance: FLUTICASONE FUROATE\VILANTEROL TRIFENATATE
  10. SINGULAIR [Concomitant]
     Active Substance: MONTELUKAST SODIUM
  11. LISINOPRIL [Concomitant]
     Active Substance: LISINOPRIL
  12. ALBUTEROL SULFATE [Concomitant]
     Active Substance: ALBUTEROL SULFATE
  13. PHENERGAN [Concomitant]
     Active Substance: PROMETHAZINE HYDROCHLORIDE
  14. VITAMINS [Concomitant]
     Active Substance: VITAMINS
  15. ZOFRAN [Concomitant]
     Active Substance: ONDANSETRON HYDROCHLORIDE
  16. LEXAPRO [Concomitant]
     Active Substance: ESCITALOPRAM OXALATE
  17. LIDOCAINE [Concomitant]
     Active Substance: LIDOCAINE
  18. MUCINEX [Concomitant]
     Active Substance: GUAIFENESIN
  19. PROAIR HFA [Concomitant]
     Active Substance: ALBUTEROL SULFATE
  20. NUCALA [Concomitant]
     Active Substance: MEPOLIZUMAB
  21. DIPHENHYDRAMINE HYDROCHLORIDE [Concomitant]
     Active Substance: DIPHENHYDRAMINE HYDROCHLORIDE
  22. DEXILANT [Concomitant]
     Active Substance: DEXLANSOPRAZOLE
  23. BENZONATATE [Concomitant]
     Active Substance: BENZONATATE
  24. LUMIGAN [Concomitant]
     Active Substance: BIMATOPROST
  25. DIPHENHYDRAMINE [Concomitant]
     Active Substance: DIPHENHYDRAMINE
  26. EPINEPHRINE [Concomitant]
     Active Substance: EPINEPHRINE
  27. ZANTAC [Concomitant]
     Active Substance: RANITIDINE HYDROCHLORIDE
  28. STERILE WATER [Concomitant]
     Active Substance: WATER
  29. TESSALON [Concomitant]
     Active Substance: BENZONATATE

REACTIONS (12)
  - Stress cardiomyopathy [Unknown]
  - Impaired gastric emptying [Unknown]
  - Pneumonia [Recovered/Resolved]
  - COVID-19 [Unknown]
  - Respiratory disorder [Unknown]
  - Bronchitis [Unknown]
  - Product use issue [Unknown]
  - Insurance issue [Unknown]
  - Eye infection [Unknown]
  - Sinusitis [Unknown]
  - Anaemia [Unknown]
  - Fatigue [Unknown]

NARRATIVE: CASE EVENT DATE: 20221225
